FAERS Safety Report 10335458 (Version 4)
Quarter: 2014Q4

REPORT INFORMATION
  Report Type: Spontaneous
  Country: JP (occurrence: JP)
  Receive Date: 20140723
  Receipt Date: 20141006
  Transmission Date: 20150528
  Serious: Yes (Death, Hospitalization)
  Sender: FDA-Public Use
  Company Number: PHHY2014JP089558

PATIENT
  Age: 74 Year
  Sex: Male

DRUGS (11)
  1. NEORAL [Suspect]
     Active Substance: CYCLOSPORINE
     Dosage: 200 MG, DAILY
     Route: 048
     Dates: start: 20100612, end: 20100624
  2. NEORAL [Suspect]
     Active Substance: CYCLOSPORINE
     Dosage: 200 MG, DAILY
     Route: 048
     Dates: start: 20110903, end: 20140618
  3. ALLOPURINOL. [Concomitant]
     Active Substance: ALLOPURINOL
     Indication: PRODUCT USED FOR UNKNOWN INDICATION
     Dosage: 200 MG, UNK
     Route: 048
     Dates: end: 20140612
  4. JANUVIA [Concomitant]
     Active Substance: SITAGLIPTIN PHOSPHATE
     Indication: PRODUCT USED FOR UNKNOWN INDICATION
     Dosage: 100 MG, UNK
     Route: 048
     Dates: end: 20140612
  5. ALLELOCK [Concomitant]
     Active Substance: OLOPATADINE HYDROCHLORIDE
     Indication: PRODUCT USED FOR UNKNOWN INDICATION
     Dosage: 10 MG, UNK
     Route: 048
     Dates: start: 20100312, end: 20140618
  6. NEORAL [Suspect]
     Active Substance: CYCLOSPORINE
     Indication: DERMATITIS ATOPIC
     Dosage: UNK
     Route: 048
     Dates: start: 2009
  7. NEORAL [Suspect]
     Active Substance: CYCLOSPORINE
     Dosage: 225 MG, DAILY
     Route: 048
     Dates: start: 20100312, end: 20100611
  8. NEORAL [Suspect]
     Active Substance: CYCLOSPORINE
     Dosage: 100 MG, DAILY
     Route: 048
     Dates: start: 20110805, end: 20110902
  9. DIOVAN [Concomitant]
     Active Substance: VALSARTAN
     Indication: PRODUCT USED FOR UNKNOWN INDICATION
     Dosage: 80 MG, UNK
     Route: 048
     Dates: end: 20140612
  10. ATARAX-P [Concomitant]
     Active Substance: HYDROXYZINE HYDROCHLORIDE
     Indication: PRODUCT USED FOR UNKNOWN INDICATION
     Dosage: 100 MG, UNK
     Route: 048
     Dates: start: 20100312, end: 20140618
  11. AZILVA [Concomitant]
     Active Substance: AZILSARTAN KAMEDOXOMIL
     Indication: PRODUCT USED FOR UNKNOWN INDICATION
     Dosage: 20 MG, UNK
     Route: 048
     Dates: start: 20140613, end: 20140618

REACTIONS (19)
  - White blood cell count increased [Unknown]
  - Pyrexia [Unknown]
  - Erythema [Unknown]
  - Malaise [Unknown]
  - Interleukin-2 receptor increased [Unknown]
  - Bacteraemia [Not Recovered/Not Resolved]
  - Eosinophil count increased [Unknown]
  - Haemoglobin decreased [Unknown]
  - Interstitial lung disease [Fatal]
  - Lymphoma [Not Recovered/Not Resolved]
  - Renal disorder [Not Recovered/Not Resolved]
  - Red blood cell count decreased [Unknown]
  - Blood lactate dehydrogenase increased [Unknown]
  - Blood creatinine increased [Unknown]
  - Blood urea increased [Unknown]
  - Swelling face [Unknown]
  - Gamma-glutamyltransferase increased [Unknown]
  - Antiacetylcholine receptor antibody positive [Not Recovered/Not Resolved]
  - Lymphocyte count decreased [Unknown]

NARRATIVE: CASE EVENT DATE: 20100312
